FAERS Safety Report 7686371-1 (Version None)
Quarter: 2011Q3

REPORT INFORMATION
  Report Type: 
  Country: None (occurrence: None)
  Receive Date: 20110816
  Receipt Date: 20110811
  Transmission Date: 20111222
  Serious: Yes (Other)
  Sender: FDA-Public Use
  Company Number: JP-GLAXOSMITHKLINE-B0739453A

PATIENT
  Age: 82 Year
  Sex: Female

DRUGS (2)
  1. PAXIL [Suspect]
     Indication: PRODUCT USED FOR UNKNOWN INDICATION
     Dosage: 10MG PER DAY
     Route: 048
     Dates: end: 20110804
  2. CLARITHROMYCIN [Concomitant]
     Route: 048

REACTIONS (2)
  - AGITATION [None]
  - ABNORMAL BEHAVIOUR [None]
